FAERS Safety Report 9698266 (Version 1)
Quarter: 2013Q4

REPORT INFORMATION
  Report Type: Spontaneous
  Country: US (occurrence: None)
  Receive Date: 20131031
  Receipt Date: 20131031
  Transmission Date: 20140711
  Serious: Yes (Hospitalization)
  Sender: FDA-Public Use
  Company Number: 2013038619

PATIENT
  Age: 41 Year
  Sex: Female
  Weight: 127.01 kg

DRUGS (25)
  1. PRIVIGEN [Suspect]
     Indication: IMMUNODEFICIENCY COMMON VARIABLE
     Dosage: 5 GM VIAL;10 GM DAILY FOR 3 NON-CONSECUTIVE DAYS EVERY 30 DAYS INTRAVENOUS (NOT OTHERWISE SPECIFIED)), (10 GM VIAL;10 GM DAILY FOR 3 NON-CONSECUTIVE DAYS EVERY 30 DAYS INTRAVENOUS (NOT OTHERWISE SPECIFIED))
     Route: 042
  2. AMBIEN (ZOLPIDEM TARTRATE) [Concomitant]
  3. PREDNISONE (PREDNISONE) [Concomitant]
  4. COUMADIN (WARFARIN SODIUM) [Concomitant]
  5. OXYGEN (OXYGEN) [Concomitant]
  6. PROMETHAZINE (PROMETHAZINE) [Concomitant]
  7. ACETAMINOPHEN (PARACETAMOL) [Concomitant]
  8. DIPHENHYDRAMINE (DIPHENHYDRAMINE) [Concomitant]
  9. HEPARIN (HEPARIN) [Concomitant]
  10. SODIUM CHLORIDE [Concomitant]
  11. EPIPEN (EPINEPHRINE) [Concomitant]
  12. LMX (LIDOCAINE) [Concomitant]
  13. KLONOPIN (CLONAZEPAM) (TABLETS) [Concomitant]
  14. PROTONIX (PANTRAZOLE) [Concomitant]
  15. SOMA (CARISOPRODOL) [Concomitant]
  16. ZOLOFT (SERTRALINE) [Concomitant]
  17. ADVAIR (SERETIDE /01420901/) [Concomitant]
  18. TROPROL (METOPROLOL SUCCINATE) [Concomitant]
  19. MIRAPEX (PRAMIPEXOLE DIHYDROCHLORIDE) [Concomitant]
  20. TOPAMAX (TOPIRAMATE) [Concomitant]
  21. DILAUDID (HYDROMORPHONE HYDROCHLORIDE) [Concomitant]
  22. DUONEB (COMBIVENT /01261001/) [Concomitant]
  23. DURAGESIC (FENTANYL) [Concomitant]
  24. METHOTREXATE (METHOTREXATE) [Concomitant]
  25. RITUXAN (RITUXIMAB) [Concomitant]

REACTIONS (3)
  - Pneumonia [None]
  - Lower respiratory tract infection [None]
  - Thrombosis [None]
